FAERS Safety Report 14817373 (Version 2)
Quarter: 2018Q2

REPORT INFORMATION
  Report Type: Spontaneous
  Country: JP (occurrence: JP)
  Receive Date: 20180426
  Receipt Date: 20180626
  Transmission Date: 20180711
  Serious: No
  Sender: FDA-Public Use
  Company Number: JP-TAKEDA-2018TUS012898

PATIENT
  Age: 6 Decade
  Sex: Male

DRUGS (2)
  1. FEBURIC [Suspect]
     Active Substance: FEBUXOSTAT
     Dosage: UNK UNK, QD
     Route: 048
     Dates: start: 20180412, end: 20180419
  2. FEBURIC [Suspect]
     Active Substance: FEBUXOSTAT
     Indication: GOUT
     Dosage: UNK UNK, QD
     Route: 048
     Dates: start: 20180312, end: 20180411

REACTIONS (4)
  - Peripheral swelling [Recovered/Resolved]
  - Pain in extremity [Recovered/Resolved]
  - Blood alkaline phosphatase increased [Unknown]
  - Overdose [Unknown]

NARRATIVE: CASE EVENT DATE: 20180420
